FAERS Safety Report 7622637-9 (Version None)
Quarter: 2011Q3

REPORT INFORMATION
  Report Type: 
  Country: None (occurrence: None)
  Receive Date: 20110712
  Receipt Date: 20110627
  Transmission Date: 20111222
  Serious: Yes (Hospitalization)
  Sender: FDA-Public Use
  Company Number: 2011MA008128

PATIENT
  Age: 76 Year
  Sex: Female

DRUGS (1)
  1. TRIAMCINOLONE ACETONIDE [Suspect]
     Indication: AGE-RELATED MACULAR DEGENERATION

REACTIONS (4)
  - RETINAL PIGMENT EPITHELIAL TEAR [None]
  - RETINAL SCAR [None]
  - RETINAL DEGENERATION [None]
  - DETACHMENT OF RETINAL PIGMENT EPITHELIUM [None]
